FAERS Safety Report 7917617-X (Version None)
Quarter: 2011Q4

REPORT INFORMATION
  Report Type: 
  Country: None (occurrence: None)
  Receive Date: 20111116
  Receipt Date: 20111104
  Transmission Date: 20120403
  Serious: Yes (Hospitalization)
  Sender: FDA-Public Use
  Company Number: US-ELI_LILLY_AND_COMPANY-US201108007629

PATIENT
  Sex: Female

DRUGS (2)
  1. ZYPREXA RELPREVV [Suspect]
     Dosage: 405 MG, MONTHLY (1/M)
     Route: 030
     Dates: start: 20110812
  2. ZYPREXA RELPREVV [Suspect]
     Indication: SCHIZOPHRENIA
     Dosage: 405 MG, MONTHLY (1/M)
     Route: 030
     Dates: start: 20110624

REACTIONS (2)
  - AKATHISIA [None]
  - SCHIZOPHRENIA [None]
